FAERS Safety Report 10648150 (Version 1)
Quarter: 2014Q4

REPORT INFORMATION
  Report Type: Spontaneous
  Country: US (occurrence: None)
  Receive Date: 20141211
  Receipt Date: 20141211
  Transmission Date: 20150529
  Serious: Yes (Disabling)
  Sender: FDA-Public Use
  Company Number: None

PATIENT
  Age: 58 Year
  Sex: Female
  Weight: 64.86 kg

DRUGS (1)
  1. CHERATUSSIN AC [Suspect]
     Active Substance: CODEINE PHOSPHATE\GUAIFENESIN
     Indication: COUGH
     Dates: start: 20141208, end: 20141209

REACTIONS (5)
  - Accidental overdose [None]
  - Nausea [None]
  - Vomiting [None]
  - Malaise [None]
  - Dizziness [None]

NARRATIVE: CASE EVENT DATE: 20141209
